FAERS Safety Report 17452064 (Version 3)
Quarter: 2025Q3

REPORT INFORMATION
  Report Type: Spontaneous
  Country: EU (occurrence: EU)
  Receive Date: 20200224
  Receipt Date: 20250725
  Transmission Date: 20251021
  Serious: Yes (Other)
  Sender: MYLAN
  Company Number: EU-SA-2019SA351822

PATIENT
  Age: 6 Year
  Sex: Female

DRUGS (36)
  1. TACROLIMUS [Suspect]
     Active Substance: TACROLIMUS
     Indication: Prophylaxis against graft versus host disease
  2. TACROLIMUS [Suspect]
     Active Substance: TACROLIMUS
     Route: 065
  3. TACROLIMUS [Suspect]
     Active Substance: TACROLIMUS
     Route: 065
  4. TACROLIMUS [Suspect]
     Active Substance: TACROLIMUS
  5. FLUDARABINE [Suspect]
     Active Substance: FLUDARABINE PHOSPHATE
     Indication: Sickle cell disease
     Dosage: 30 MILLIGRAM/SQ. METER, QD (DAYS -7 TO -3)
  6. FLUDARABINE [Suspect]
     Active Substance: FLUDARABINE PHOSPHATE
     Indication: Bone marrow conditioning regimen
     Dosage: 30 MILLIGRAM/SQ. METER, QD (DAYS -7 TO -3)
     Route: 065
  7. FLUDARABINE [Suspect]
     Active Substance: FLUDARABINE PHOSPHATE
     Dosage: 30 MILLIGRAM/SQ. METER, QD (DAYS -7 TO -3)
     Route: 065
  8. FLUDARABINE [Suspect]
     Active Substance: FLUDARABINE PHOSPHATE
     Dosage: 30 MILLIGRAM/SQ. METER, QD (DAYS -7 TO -3)
  9. MYCOPHENOLATE MOFETIL [Suspect]
     Active Substance: MYCOPHENOLATE MOFETIL
     Dosage: 15 MILLIGRAM/KILOGRAM, Q8H (DAYS +5 TO +35)
  10. MYCOPHENOLATE MOFETIL [Suspect]
     Active Substance: MYCOPHENOLATE MOFETIL
     Dosage: 15 MILLIGRAM/KILOGRAM, Q8H (DAYS +5 TO +35)
     Route: 065
  11. MYCOPHENOLATE MOFETIL [Suspect]
     Active Substance: MYCOPHENOLATE MOFETIL
     Dosage: 15 MILLIGRAM/KILOGRAM, Q8H (DAYS +5 TO +35)
     Route: 065
  12. MYCOPHENOLATE MOFETIL [Suspect]
     Active Substance: MYCOPHENOLATE MOFETIL
     Dosage: 15 MILLIGRAM/KILOGRAM, Q8H (DAYS +5 TO +35)
  13. TREOSULFAN [Suspect]
     Active Substance: TREOSULFAN
     Indication: Bone marrow conditioning regimen
     Dosage: 14 GRAM PER SQUARE METRE, QD (DAYS  -7  TO  -5)
  14. TREOSULFAN [Suspect]
     Active Substance: TREOSULFAN
     Indication: Sickle cell disease
     Dosage: 14 GRAM PER SQUARE METRE, QD (DAYS  -7  TO  -5)
     Route: 065
  15. TREOSULFAN [Suspect]
     Active Substance: TREOSULFAN
     Dosage: 14 GRAM PER SQUARE METRE, QD (DAYS  -7  TO  -5)
     Route: 065
  16. TREOSULFAN [Suspect]
     Active Substance: TREOSULFAN
     Dosage: 14 GRAM PER SQUARE METRE, QD (DAYS  -7  TO  -5)
  17. LENOGRASTIM [Suspect]
     Active Substance: LENOGRASTIM
     Indication: Prophylaxis against graft versus host disease
     Dosage: 5 MICROGRAM/KILOGRAM, QD
  18. LENOGRASTIM [Suspect]
     Active Substance: LENOGRASTIM
     Dosage: 5 MICROGRAM/KILOGRAM, QD
     Route: 065
  19. LENOGRASTIM [Suspect]
     Active Substance: LENOGRASTIM
     Dosage: 5 MICROGRAM/KILOGRAM, QD
     Route: 065
  20. LENOGRASTIM [Suspect]
     Active Substance: LENOGRASTIM
     Dosage: 5 MICROGRAM/KILOGRAM, QD
  21. THIOTEPA [Suspect]
     Active Substance: THIOTEPA
     Indication: Sickle cell disease
     Dosage: 5 MILLIGRAM/KILOGRAM, BID (DAY  -4)
  22. THIOTEPA [Suspect]
     Active Substance: THIOTEPA
     Indication: Bone marrow conditioning regimen
     Dosage: 5 MILLIGRAM/KILOGRAM, BID (DAY  -4)
     Route: 065
  23. THIOTEPA [Suspect]
     Active Substance: THIOTEPA
     Dosage: 5 MILLIGRAM/KILOGRAM, BID (DAY  -4)
     Route: 065
  24. THIOTEPA [Suspect]
     Active Substance: THIOTEPA
     Dosage: 5 MILLIGRAM/KILOGRAM, BID (DAY  -4)
  25. CYCLOPHOSPHAMIDE [Suspect]
     Active Substance: CYCLOPHOSPHAMIDE
     Indication: Bone marrow conditioning regimen
     Dosage: 50 MILLIGRAM/KILOGRAM, QD ON DAYS +3 AND +4
  26. CYCLOPHOSPHAMIDE [Suspect]
     Active Substance: CYCLOPHOSPHAMIDE
     Indication: Prophylaxis against graft versus host disease
     Dosage: 50 MILLIGRAM/KILOGRAM, QD ON DAYS +3 AND +4
  27. CYCLOPHOSPHAMIDE [Suspect]
     Active Substance: CYCLOPHOSPHAMIDE
     Indication: Sickle cell disease
     Dosage: 50 MILLIGRAM/KILOGRAM, QD ON DAYS +3 AND +4
     Route: 065
  28. CYCLOPHOSPHAMIDE [Suspect]
     Active Substance: CYCLOPHOSPHAMIDE
     Dosage: 50 MILLIGRAM/KILOGRAM, QD ON DAYS +3 AND +4
     Route: 065
  29. CYCLOPHOSPHAMIDE [Suspect]
     Active Substance: CYCLOPHOSPHAMIDE
     Dosage: 14.5 MILLIGRAM/KILOGRAM, QD (DAYS  -3  TO  -2)
  30. CYCLOPHOSPHAMIDE [Suspect]
     Active Substance: CYCLOPHOSPHAMIDE
     Dosage: 14.5 MILLIGRAM/KILOGRAM, QD (DAYS  -3  TO  -2)
  31. CYCLOPHOSPHAMIDE [Suspect]
     Active Substance: CYCLOPHOSPHAMIDE
     Dosage: 14.5 MILLIGRAM/KILOGRAM, QD (DAYS  -3  TO  -2)
     Route: 065
  32. CYCLOPHOSPHAMIDE [Suspect]
     Active Substance: CYCLOPHOSPHAMIDE
     Dosage: 14.5 MILLIGRAM/KILOGRAM, QD (DAYS  -3  TO  -2)
     Route: 065
  33. ALEMTUZUMAB [Suspect]
     Active Substance: ALEMTUZUMAB
     Indication: Bone marrow conditioning regimen
     Dosage: 0.2 MILLIGRAM/KILOGRAM, QD (DAYS -9 TO -8)
  34. ALEMTUZUMAB [Suspect]
     Active Substance: ALEMTUZUMAB
     Indication: Sickle cell disease
     Dosage: 0.2 MILLIGRAM/KILOGRAM, QD (DAYS -9 TO -8)
     Route: 065
  35. ALEMTUZUMAB [Suspect]
     Active Substance: ALEMTUZUMAB
     Dosage: 0.2 MILLIGRAM/KILOGRAM, QD (DAYS -9 TO -8)
     Route: 065
  36. ALEMTUZUMAB [Suspect]
     Active Substance: ALEMTUZUMAB
     Dosage: 0.2 MILLIGRAM/KILOGRAM, QD (DAYS -9 TO -8)

REACTIONS (6)
  - Staphylococcal infection [Unknown]
  - Pseudomonas infection [Unknown]
  - Cytomegalovirus infection reactivation [Unknown]
  - Off label use [Unknown]
  - Parotitis [Unknown]
  - Intentional product misuse [Unknown]
